FAERS Safety Report 9071198 (Version 1)
Quarter: 2013Q1

REPORT INFORMATION
  Report Type: Spontaneous
  Country: US (occurrence: US)
  Receive Date: 20130129
  Receipt Date: 20130129
  Transmission Date: 20140127
  Serious: No
  Sender: FDA-Public Use
  Company Number: US-ABBOTT-12P-163-0922457-00

PATIENT
  Sex: Male
  Weight: 68.1 kg

DRUGS (3)
  1. HUMIRA 40 MG/0.8 ML PEN [Suspect]
     Indication: CROHN^S DISEASE
     Dates: start: 201102
  2. PRILOSEC [Concomitant]
     Indication: GASTROOESOPHAGEAL REFLUX DISEASE
     Dates: start: 2004
  3. FLU SHOT [Concomitant]
     Indication: IMMUNISATION
     Dates: start: 201203, end: 201203

REACTIONS (3)
  - Trismus [Recovering/Resolving]
  - Skin infection [Not Recovered/Not Resolved]
  - Facial pain [Recovering/Resolving]
